FAERS Safety Report 6604828-9 (Version None)
Quarter: 2010Q1

REPORT INFORMATION
  Report Type: 
  Country: None (occurrence: None)
  Receive Date: 20100226
  Receipt Date: 20100222
  Transmission Date: 20100710
  Serious: Yes (Other)
  Sender: FDA-Public Use
  Company Number: DE-ROCHE-687269

PATIENT
  Sex: Female

DRUGS (2)
  1. AVASTIN [Suspect]
     Dosage: TWO CYCLES ADMINISTERED.
     Route: 065
  2. TAXANE NOS [Suspect]
     Dosage: TWO CYCLES ADMINISTERED.
     Route: 065

REACTIONS (2)
  - RETINAL HAEMORRHAGE [None]
  - VISUAL FIELD DEFECT [None]
